FAERS Safety Report 9301626 (Version 2)
Quarter: 2013Q2

REPORT INFORMATION
  Report Type: Report from Study
  Country: DE (occurrence: DE)
  Receive Date: 20130521
  Receipt Date: 20130530
  Transmission Date: 20140414
  Serious: Yes (Hospitalization)
  Sender: FDA-Public Use
  Company Number: DE-ROCHE-1224470

PATIENT
  Age: 52 Year
  Sex: Female
  Weight: 65 kg

DRUGS (5)
  1. TRASTUZUMAB [Suspect]
     Indication: BREAST CANCER
     Dosage: LAST DOSE PRIOR TO SAE ON 07/MAY/2013
     Route: 042
     Dates: start: 20130212
  2. PERTUZUMAB [Suspect]
     Indication: BREAST CANCER
     Dosage: LAST DOSE PRIOR TO SAE ON 07/MAY/2013
     Route: 042
     Dates: start: 20130212
  3. NAB-PACLITAXEL [Suspect]
     Indication: BREAST CANCER
     Dosage: LAST DOSE PRIOR TO SAE ON 30/APR/2013
     Route: 042
     Dates: start: 20130212
  4. EPIRUBICIN [Suspect]
     Indication: BREAST CANCER
     Dosage: LAST DOSE PRIOR TO SAE ON 07/MAY/2013
     Route: 042
     Dates: start: 20130507
  5. CYCLOPHOSPHAMIDE [Suspect]
     Indication: BREAST CANCER
     Dosage: LAST DOSE PRIOR TO SAE ON 07/MAY/2013
     Route: 042
     Dates: start: 20130507

REACTIONS (2)
  - Syncope [Recovered/Resolved]
  - Pyrexia [Recovered/Resolved]
